FAERS Safety Report 9731420 (Version 2)
Quarter: 2014Q1

REPORT INFORMATION
  Report Type: Spontaneous
  Country: FR (occurrence: FR)
  Receive Date: 20131203
  Receipt Date: 20140213
  Transmission Date: 20141002
  Serious: Yes (Hospitalization, Other)
  Sender: FDA-Public Use
  Company Number: FR-BAYER-2013-143549

PATIENT
  Age: 20 Year
  Sex: Female
  Weight: 55 kg

DRUGS (3)
  1. GADOVIST [Suspect]
     Indication: NUCLEAR MAGNETIC RESONANCE IMAGING BRAIN
     Dosage: 7.5 ML, ONCE
     Dates: start: 20131122, end: 20131122
  2. GADOVIST [Suspect]
     Indication: HEADACHE
  3. BETADINE [Concomitant]
     Route: 003

REACTIONS (6)
  - Rash erythematous [Recovered/Resolved]
  - Cardio-respiratory arrest [Recovered/Resolved]
  - Cyanosis [Recovered/Resolved]
  - Loss of consciousness [Recovered/Resolved]
  - Urinary tract disorder [Recovered/Resolved]
  - Bronchospasm [Recovered/Resolved]
